FAERS Safety Report 9830862 (Version 1)
Quarter: 2014Q1

REPORT INFORMATION
  Report Type: Spontaneous
  Country: US (occurrence: US)
  Receive Date: 20140120
  Receipt Date: 20140120
  Transmission Date: 20141002
  Serious: Yes (Other)
  Sender: FDA-Public Use
  Company Number: US-ABBVIE-14P-163-1189435-00

PATIENT
  Sex: 0

DRUGS (4)
  1. HUMIRA [Suspect]
     Indication: CROHN^S DISEASE
  2. PREDNISONE [Suspect]
     Indication: CROHN^S DISEASE
     Dosage: HIGH DOSE
     Route: 042
  3. REMICADE [Suspect]
     Indication: CROHN^S DISEASE
  4. CIMZIA [Suspect]
     Indication: CROHN^S DISEASE

REACTIONS (5)
  - Malabsorption [Unknown]
  - Anaemia [Unknown]
  - Malaise [Unknown]
  - Infection [Unknown]
  - Osteomalacia [Unknown]
